FAERS Safety Report 23418753 (Version 1)
Quarter: 2024Q1

REPORT INFORMATION
  Report Type: Other
  Country: US (occurrence: US)
  Receive Date: 20240118
  Receipt Date: 20240118
  Transmission Date: 20240410
  Serious: Yes (Other)
  Sender: FDA-Public Use
  Company Number: US-UROVANT SCIENCES GMBH-202311-URV-002115

PATIENT
  Age: 62 Year
  Sex: Female

DRUGS (4)
  1. GEMTESA [Suspect]
     Active Substance: VIBEGRON
     Indication: Hypertonic bladder
     Dosage: 75 MG, QD
     Route: 048
  2. GEMTESA [Suspect]
     Active Substance: VIBEGRON
     Indication: Micturition urgency
  3. OXYBUTYNIN [Concomitant]
     Active Substance: OXYBUTYNIN\OXYBUTYNIN CHLORIDE
     Indication: Hypertonic bladder
  4. OXYBUTYNIN [Concomitant]
     Active Substance: OXYBUTYNIN\OXYBUTYNIN CHLORIDE
     Indication: Micturition urgency

REACTIONS (1)
  - Urinary retention [Unknown]
